FAERS Safety Report 9849008 (Version 1)
Quarter: 2014Q1

REPORT INFORMATION
  Report Type: Spontaneous
  Country: US (occurrence: None)
  Receive Date: 20140124
  Receipt Date: 20140124
  Transmission Date: 20141002
  Serious: Yes (Other)
  Sender: FDA-Public Use
  Company Number: None

PATIENT
  Age: 62 Year
  Sex: Female
  Weight: 93.44 kg

DRUGS (1)
  1. VICTOZA [Suspect]
     Route: 058
     Dates: start: 201302, end: 201312

REACTIONS (2)
  - Pancreatic carcinoma [None]
  - Metastases to liver [None]
